FAERS Safety Report 11676147 (Version 1)
Quarter: 2015Q4

REPORT INFORMATION
  Report Type: Spontaneous
  Country: US (occurrence: US)
  Receive Date: 20151027
  Receipt Date: 20151027
  Transmission Date: 20160304
  Serious: No
  Sender: FDA-Public Use
  Company Number: US-ELI_LILLY_AND_COMPANY-US201009004968

PATIENT
  Sex: Female

DRUGS (1)
  1. FORTEO [Suspect]
     Active Substance: TERIPARATIDE
     Dosage: 20 UG, UNK

REACTIONS (6)
  - Hyperhidrosis [Unknown]
  - Injection site urticaria [Unknown]
  - Fatigue [Unknown]
  - Injection site bruising [Unknown]
  - Injection site pain [Unknown]
  - Constipation [Unknown]

NARRATIVE: CASE EVENT DATE: 20100912
